FAERS Safety Report 15394684 (Version 1)
Quarter: 2018Q3

REPORT INFORMATION
  Report Type: Other
  Country: IT (occurrence: IT)
  Receive Date: 20180918
  Receipt Date: 20180918
  Transmission Date: 20181010
  Serious: Yes (Hospitalization)
  Sender: FDA-Public Use
  Company Number: IT-ASTELLAS-2018US040212

PATIENT
  Age: 20 Year
  Sex: Female

DRUGS (3)
  1. DELTACORTENE [Suspect]
     Active Substance: PREDNISONE
     Indication: DRUG ABUSE
     Dosage: UNK UNK, UNKNOWN FREQ.
     Route: 048
  2. CELLCEPT [Suspect]
     Active Substance: MYCOPHENOLATE MOFETIL\MYCOPHENOLATE MOFETIL HYDROCHLORIDE
     Indication: DRUG ABUSE
     Route: 048
     Dates: start: 20180429, end: 20180429
  3. PROGRAF [Suspect]
     Active Substance: TACROLIMUS\TACROLIMUS ANHYDROUS
     Indication: DRUG ABUSE
     Route: 048
     Dates: start: 20180429, end: 20180429

REACTIONS (3)
  - Laceration [Unknown]
  - Toxicity to various agents [Unknown]
  - Drug abuse [Unknown]

NARRATIVE: CASE EVENT DATE: 20180429
